FAERS Safety Report 5576040-6 (Version None)
Quarter: 2007Q4

REPORT INFORMATION
  Report Type: 
  Country: None (occurrence: None)
  Receive Date: 20071228
  Receipt Date: 20071101
  Transmission Date: 20080405
  Serious: No
  Sender: FDA-Public Use
  Company Number: A0691029A

PATIENT
  Sex: Female

DRUGS (7)
  1. ADVAIR DISKUS 100/50 [Suspect]
     Indication: ASTHMA
     Dosage: 1PUFF TWICE PER DAY
     Route: 055
     Dates: start: 20070901
  2. SYNTHROID [Concomitant]
  3. OMEPRAZOLE [Concomitant]
  4. DIOVAN [Concomitant]
  5. OXYBUTYNIN CHLORIDE [Concomitant]
  6. CALCIUM [Concomitant]
  7. FOSAMAX [Concomitant]

REACTIONS (2)
  - DYSGEUSIA [None]
  - PHARMACEUTICAL PRODUCT COMPLAINT [None]
